FAERS Safety Report 6011827-7 (Version None)
Quarter: 2008Q4

REPORT INFORMATION
  Report Type: 
  Country: None (occurrence: None)
  Receive Date: 20081218
  Receipt Date: 20081208
  Transmission Date: 20090506
  Serious: Yes (Hospitalization)
  Sender: FDA-Public Use
  Company Number: DE-ABBOTT-08P-062-0491957-00

PATIENT
  Sex: Female

DRUGS (4)
  1. HUMIRA [Suspect]
     Indication: CROHN'S DISEASE
     Route: 058
     Dates: start: 20070307
  2. METRONIDAZOLE [Concomitant]
     Indication: ANTIBIOTIC THERAPY
     Route: 048
  3. PREDNISOLONE SODIUM PHOSPHATE [Concomitant]
     Indication: CROHN'S DISEASE
     Route: 048
  4. PREDNISOLONE SODIUM PHOSPHATE [Concomitant]
     Dosage: IF NECESSARY FOR ACUTE CROHN'S ATTACK
     Route: 048

REACTIONS (1)
  - INTESTINAL PERFORATION [None]
